FAERS Safety Report 9255458 (Version 1)
Quarter: 2013Q2

REPORT INFORMATION
  Report Type: Spontaneous
  Country: US (occurrence: US)
  Receive Date: 20130425
  Receipt Date: 20130425
  Transmission Date: 20140414
  Serious: No
  Sender: FDA-Public Use
  Company Number: US-B.I. PHARMACEUTICALS,INC./RIDGEFIELD-2013-BI-10645BP

PATIENT
  Age: 67 Year
  Sex: Female
  Weight: 71 kg

DRUGS (1)
  1. COMBIVENT [Suspect]
     Indication: CHRONIC OBSTRUCTIVE PULMONARY DISEASE
     Route: 055
     Dates: start: 20130329

REACTIONS (3)
  - Lung hyperinflation [Not Recovered/Not Resolved]
  - Pulmonary congestion [Not Recovered/Not Resolved]
  - Cough [Not Recovered/Not Resolved]
